FAERS Safety Report 9303463 (Version 1)
Quarter: 2013Q2

REPORT INFORMATION
  Report Type: Spontaneous
  Country: US (occurrence: US)
  Receive Date: 20130522
  Receipt Date: 20130522
  Transmission Date: 20140414
  Serious: No
  Sender: FDA-Public Use
  Company Number: US-TEVA-407074USA

PATIENT
  Age: 23 Year
  Sex: Female
  Weight: 64.01 kg

DRUGS (2)
  1. PLAN B ONE-STEP [Suspect]
     Indication: POST COITAL CONTRACEPTION
     Dosage: 1.5 MILLIGRAM DAILY;
     Route: 048
     Dates: start: 20130508, end: 20130508
  2. NORETHINDRONE [Concomitant]
     Indication: CONTRACEPTION
     Route: 048

REACTIONS (3)
  - Back pain [Recovered/Resolved]
  - Menstruation irregular [Not Recovered/Not Resolved]
  - Abdominal pain [Not Recovered/Not Resolved]
